FAERS Safety Report 9203664 (Version 2)
Quarter: 2013Q2

REPORT INFORMATION
  Report Type: Report from Study
  Country: NL (occurrence: NL)
  Receive Date: 20130402
  Receipt Date: 20130528
  Transmission Date: 20140414
  Serious: Yes (Hospitalization)
  Sender: FDA-Public Use
  Company Number: PHHY2013NL031150

PATIENT
  Sex: Female
  Weight: 77 kg

DRUGS (11)
  1. ACLASTA [Suspect]
     Indication: OSTEOPOROSIS
     Dosage: 5 MG, 1XPER 364 DAYS
     Route: 042
     Dates: start: 20120330
  2. ACLASTA [Suspect]
     Dosage: 5 MG, 1X PER 364 DAYS
     Route: 042
     Dates: start: 20130328
  3. PARACETAMOL [Concomitant]
     Dosage: 500 MG, 4DD2
  4. PARACETAMOL [Concomitant]
     Dosage: 3 DD 1000 MG
  5. LORAZEPAM [Concomitant]
     Dosage: 1 MG, 2 X 0.5
  6. LORAZEPAM [Concomitant]
     Dosage: 4 X 0.5 MG
  7. OMEPRAZOLE [Concomitant]
     Dosage: 20 MG, 1X1
  8. PREDNISOLONE [Concomitant]
     Dosage: 5 MG, TID
  9. DEVRON [Concomitant]
     Dosage: 400 IU, 1X1
  10. OLANZAPINE [Concomitant]
     Dosage: 5 MG, 1X1
  11. PRIDAL [Concomitant]
     Dosage: 400 MG, 1X1.5

REACTIONS (3)
  - Anxiety [Recovering/Resolving]
  - Pyrexia [Recovered/Resolved]
  - Influenza like illness [Recovered/Resolved]
